FAERS Safety Report 8326373-5 (Version None)
Quarter: 2012Q2

REPORT INFORMATION
  Report Type: 
  Country: None (occurrence: None)
  Receive Date: 20120501
  Receipt Date: 20090620
  Transmission Date: 20120825
  Serious: No
  Sender: FDA-Public Use
  Company Number: US-TEVA-2009007411

PATIENT
  Sex: Female
  Weight: 71.732 kg

DRUGS (6)
  1. NUVIGIL [Suspect]
     Indication: SLEEP APNOEA SYNDROME
     Route: 046
     Dates: start: 20090619, end: 20090620
  2. LEVOTHROID [Concomitant]
     Indication: THYROID DISORDER
  3. VICODIN [Concomitant]
     Indication: HEADACHE
  4. MAXZIDE [Concomitant]
     Indication: HYPERTENSION
  5. COZAAR [Concomitant]
     Indication: HYPERTENSION
  6. KLONOPIN [Concomitant]
     Indication: FAMILIAL TREMOR

REACTIONS (6)
  - TINNITUS [None]
  - INSOMNIA [None]
  - BLOOD PRESSURE INCREASED [None]
  - HEADACHE [None]
  - DRY EYE [None]
  - EYE IRRITATION [None]
